FAERS Safety Report 8119014-3 (Version None)
Quarter: 2012Q1

REPORT INFORMATION
  Report Type: 
  Country: None (occurrence: None)
  Receive Date: 20120207
  Receipt Date: 20120125
  Transmission Date: 20120608
  Serious: Yes (Other)
  Sender: FDA-Public Use
  Company Number: US-ELI_LILLY_AND_COMPANY-US201103002375

PATIENT
  Sex: Female

DRUGS (3)
  1. FORTEO [Suspect]
     Indication: OSTEOPOROSIS
     Dosage: 20 UG, QD
     Route: 065
     Dates: start: 20100101, end: 20120122
  2. COUMADIN [Concomitant]
     Indication: CARDIAC DISORDER
  3. CARDIOVASCULAR SYSTEM DRUGS [Concomitant]
     Indication: CARDIAC DISORDER

REACTIONS (4)
  - SKIN DISORDER [None]
  - MALIGNANT MELANOMA [None]
  - INTERVERTEBRAL DISC PROTRUSION [None]
  - BONE DENSITY ABNORMAL [None]
